FAERS Safety Report 6487295-8 (Version None)
Quarter: 2009Q4

REPORT INFORMATION
  Report Type: 
  Country: None (occurrence: None)
  Receive Date: 20091210
  Receipt Date: 20091201
  Transmission Date: 20100525
  Serious: Yes (Hospitalization)
  Sender: FDA-Public Use
  Company Number: US-ROCHE-640837

PATIENT
  Sex: Female
  Weight: 63.5 kg

DRUGS (10)
  1. BONIVA [Suspect]
     Indication: OSTEOPOROSIS
     Dosage: OTHER INDICATION: OSTEOPENIA
     Route: 048
     Dates: start: 20070202
  2. BONIVA [Suspect]
     Dosage: OTHER INDICATION: OSTEOPENIA
     Route: 048
     Dates: start: 20080701, end: 20090101
  3. BONIVA [Suspect]
     Route: 048
     Dates: start: 20090502, end: 20090901
  4. LOPID [Concomitant]
     Route: 048
  5. PEPCID [Concomitant]
     Dosage: FREQUENCY: AS NEEDED (PRN)
     Route: 048
  6. XENICAL [Concomitant]
     Dosage: FREQUENCY: AS NEEDED (PRN)
     Route: 048
  7. ASPIRIN [Concomitant]
     Dosage: DRUG: COATED ASPIRIN
  8. WELCHOL [Concomitant]
  9. LORTAB [Concomitant]
     Dosage: FREQ: Q4-6H
  10. FOSAMAX [Concomitant]

REACTIONS (10)
  - ARTHRALGIA [None]
  - GAIT DISTURBANCE [None]
  - HYPOAESTHESIA [None]
  - INTERVERTEBRAL DISC PROTRUSION [None]
  - MENISCUS LESION [None]
  - MOBILITY DECREASED [None]
  - MUSCLE SPASMS [None]
  - PAIN [None]
  - PAIN IN EXTREMITY [None]
  - SPONDYLOLISTHESIS [None]
